FAERS Safety Report 4299497-X (Version None)
Quarter: 2004Q1

REPORT INFORMATION
  Report Type: 
  Country: None (occurrence: None)
  Receive Date: 20040217
  Receipt Date: 20040204
  Transmission Date: 20041129
  Serious: Yes (Hospitalization)
  Sender: FDA-Public Use
  Company Number: 2004007886

PATIENT
  Age: 34 Year
  Sex: Male

DRUGS (4)
  1. PRO-EPANUTIN (FOSPHENYTOIN SODIUM) [Suspect]
     Indication: EPILEPSY
     Dosage: INTRAVENOUS
     Route: 042
     Dates: start: 20031013, end: 20031015
  2. SERTRALINE HCL [Concomitant]
  3. CARBAMAZEPINE [Concomitant]
  4. VALPROATE SODIUM [Concomitant]

REACTIONS (7)
  - ANXIETY [None]
  - BALANCE DISORDER [None]
  - DIZZINESS [None]
  - MOTOR DYSFUNCTION [None]
  - MUSCLE SPASMS [None]
  - NYSTAGMUS [None]
  - VISUAL ACUITY REDUCED [None]
